FAERS Safety Report 5031667-5 (Version None)
Quarter: 2006Q2

REPORT INFORMATION
  Report Type: 
  Country: None (occurrence: None)
  Receive Date: 20060615
  Receipt Date: 20060602
  Transmission Date: 20061013
  Serious: Yes (Hospitalization, Congenital Anomaly)
  Sender: FDA-Public Use
  Company Number: 6023010

PATIENT
  Age: 39 Year
  Sex: Female

DRUGS (2)
  1. BISOPROLOL FUMARATE [Suspect]
     Dosage: 5 MG (5 MG, 1 IN 1 D) ORAL
     Route: 048
  2. RAMIPRIL [Suspect]
     Dosage: 2,5 MG (2,5 MG, 1 IN 1 D) ORAL
     Route: 048

REACTIONS (4)
  - ABORTION INDUCED [None]
  - DRUG EXPOSURE DURING PREGNANCY [None]
  - OLIGOHYDRAMNIOS [None]
  - RENAL APLASIA [None]
